FAERS Safety Report 9019410 (Version 2)
Quarter: 2013Q2

REPORT INFORMATION
  Report Type: Spontaneous
  Country: US (occurrence: US)
  Receive Date: 20130119
  Receipt Date: 20130507
  Transmission Date: 20140414
  Serious: No
  Sender: FDA-Public Use
  Company Number: US-009507513-1301USA007813

PATIENT
  Sex: Male

DRUGS (2)
  1. REBETOL [Suspect]
     Indication: CHRONIC HEPATITIS C
     Dosage: UNK
     Dates: start: 20110107, end: 20111202
  2. PEGASYS [Suspect]
     Indication: CHRONIC HEPATITIS C
     Dosage: UNK
     Dates: start: 20110107, end: 20111202

REACTIONS (2)
  - Rash [Unknown]
  - Drug ineffective [Unknown]
